FAERS Safety Report 5796858-4 (Version None)
Quarter: 2008Q3

REPORT INFORMATION
  Report Type: 
  Country: None (occurrence: None)
  Receive Date: 20080701
  Receipt Date: 20080626
  Transmission Date: 20090109
  Serious: Yes (Hospitalization)
  Sender: FDA-Public Use
  Company Number: DE-AVENTIS-200811519DE

PATIENT
  Age: 61 Year
  Sex: Male
  Weight: 58.7 kg

DRUGS (3)
  1. TAXOTERE [Suspect]
     Dosage: DOSE: NOT REPORTED
     Route: 042
     Dates: start: 20070401, end: 20070501
  2. CISPLATIN [Suspect]
     Dosage: DOSE: NOT REPORTED
     Route: 042
     Dates: start: 20070401, end: 20070501
  3. FLUOROURACIL [Concomitant]
     Dosage: DOSE: NOT REPORTED
     Dates: end: 20070501

REACTIONS (1)
  - CENTRAL NERVOUS SYSTEM LYMPHOMA [None]
